FAERS Safety Report 16707092 (Version 1)
Quarter: 2019Q3

REPORT INFORMATION
  Report Type: Spontaneous
  Country: US (occurrence: US)
  Receive Date: 20190815
  Receipt Date: 20190815
  Transmission Date: 20191004
  Serious: No
  Sender: FDA-Public Use
  Company Number: US-THERAPEUTICSMD-2019TMD01736

PATIENT
  Age: 50 Year
  Sex: Female

DRUGS (1)
  1. BIJUVA [Suspect]
     Active Substance: ESTRADIOL\PROGESTERONE
     Indication: MENOPAUSE
     Dosage: 1 CAPSULES, 1X/DAY AT DINNER
     Route: 048
     Dates: start: 20190606, end: 20190630

REACTIONS (7)
  - Facial pain [Not Recovered/Not Resolved]
  - Swelling face [Recovering/Resolving]
  - Salivary gland disorder [Not Recovered/Not Resolved]
  - Off label use [Not Recovered/Not Resolved]
  - Dry mouth [Not Recovered/Not Resolved]
  - Feeding disorder [Not Recovered/Not Resolved]
  - Ear pain [Not Recovered/Not Resolved]

NARRATIVE: CASE EVENT DATE: 201906
